FAERS Safety Report 8825493 (Version 2)
Quarter: 2012Q4

REPORT INFORMATION
  Report Type: 
  Country: US (occurrence: US)
  Receive Date: 20121004
  Receipt Date: 20121221
  Transmission Date: 20130627
  Serious: No
  Sender: FDA-Public Use
  Company Number: US-ASTRAZENECA-2012SE74416

PATIENT
  Age: 68 Year
  Sex: Male
  Weight: 62.8 kg

DRUGS (2)
  1. SYMBICORT PMDI [Suspect]
     Indication: CHRONIC OBSTRUCTIVE PULMONARY DISEASE
     Dosage: 160/4.5, UNKNOWN FREQUENCY
     Route: 055
  2. UNSPECIFIED INGREDIENT [Suspect]

REACTIONS (3)
  - Abdominal discomfort [Recovered/Resolved]
  - Diarrhoea [Unknown]
  - Circumstance or information capable of leading to medication error [Unknown]
